FAERS Safety Report 5415852-6 (Version None)
Quarter: 2007Q3

REPORT INFORMATION
  Report Type: 
  Country: None (occurrence: None)
  Receive Date: 20070815
  Receipt Date: 20070815
  Transmission Date: 20080115
  Serious: Yes (Death)
  Sender: FDA-Public Use
  Company Number: US-ROXANE LABORATORIES, INC-2007-BP-19244RO

PATIENT
  Sex: Male

DRUGS (1)
  1. LORAZEPAM INTENSOL [Suspect]
     Route: 042
     Dates: start: 20070801, end: 20070801

REACTIONS (1)
  - INCORRECT ROUTE OF DRUG ADMINISTRATION [None]
